FAERS Safety Report 19480551 (Version 4)
Quarter: 2021Q4

REPORT INFORMATION
  Report Type: Report from Study
  Country: TW (occurrence: TW)
  Receive Date: 20210701
  Receipt Date: 20211004
  Transmission Date: 20220303
  Serious: Yes (Hospitalization)
  Sender: FDA-Public Use
  Company Number: TW-BRISTOL-MYERS SQUIBB COMPANY-BMS-2021-061088

PATIENT
  Age: 62 Year
  Sex: Male
  Weight: 63 kg

DRUGS (18)
  1. NIVOLUMAB [Suspect]
     Active Substance: NIVOLUMAB
     Indication: Oesophageal squamous cell carcinoma
     Dosage: 194 MILLIGRAM
     Route: 065
     Dates: start: 20190725, end: 20190725
  2. NIVOLUMAB [Suspect]
     Active Substance: NIVOLUMAB
     Dosage: 194 MILLIGRAM
     Route: 065
     Dates: start: 20210617, end: 20210617
  3. IPILIMUMAB [Suspect]
     Active Substance: IPILIMUMAB
     Indication: Oesophageal squamous cell carcinoma
     Dosage: 65 MILLIGRAM
     Route: 065
     Dates: start: 20190725, end: 20190725
  4. IPILIMUMAB [Suspect]
     Active Substance: IPILIMUMAB
     Dosage: 65 MILLIGRAM
     Route: 065
     Dates: start: 20210603, end: 20210603
  5. EUROTECH UREA [Concomitant]
     Indication: Product used for unknown indication
     Dosage: 2 ABSENT
     Route: 061
     Dates: start: 20201102
  6. NORVASC [Concomitant]
     Active Substance: AMLODIPINE BESYLATE
     Indication: Product used for unknown indication
     Route: 048
     Dates: start: 20210114
  7. FLUOCINONIDE [Concomitant]
     Active Substance: FLUOCINONIDE
     Indication: Product used for unknown indication
     Dosage: 2 ABSENT
     Route: 061
     Dates: start: 20200225
  8. FLUOCINONIDE [Concomitant]
     Active Substance: FLUOCINONIDE
     Dosage: UNK
     Route: 061
     Dates: start: 20210329, end: 20210623
  9. FLUOCINONIDE [Concomitant]
     Active Substance: FLUOCINONIDE
     Dosage: UNK
     Route: 061
     Dates: start: 20210603, end: 20210624
  10. ICHDERM [Concomitant]
     Indication: Product used for unknown indication
     Dosage: 1 ABSENT
     Route: 061
     Dates: start: 20210308
  11. DIETHYLAMINE SALICYLATE;ESCIN;HEPARINOID [Concomitant]
     Indication: Product used for unknown indication
     Dosage: 1 ABSENT
     Route: 061
     Dates: start: 20210329
  12. ZINC OXIDE [Concomitant]
     Active Substance: ZINC OXIDE
     Indication: Product used for unknown indication
     Dosage: 1 ABSENT
     Route: 061
     Dates: start: 20210428
  13. HYDROXYZINE [Concomitant]
     Active Substance: HYDROXYZINE HYDROCHLORIDE
     Indication: Product used for unknown indication
     Dosage: 25 MILLIGRAM
     Route: 048
     Dates: start: 20210428, end: 20210608
  14. LEVOCETRIZINE HYDROCHLORIDE [Concomitant]
     Indication: Product used for unknown indication
     Dosage: 5 MILLIGRAM
     Route: 048
     Dates: start: 20210428, end: 20210608
  15. ULTRACET [Concomitant]
     Active Substance: ACETAMINOPHEN\TRAMADOL HYDROCHLORIDE
     Indication: Product used for unknown indication
     Dosage: 2 ABSENT
     Route: 048
     Dates: start: 20210506, end: 20210616
  16. ALPRAZOLAM [Concomitant]
     Active Substance: ALPRAZOLAM
     Indication: Product used for unknown indication
     Dosage: 1 MILLIGRAM
     Route: 048
     Dates: start: 20210621, end: 20210621
  17. ALPRAZOLAM [Concomitant]
     Active Substance: ALPRAZOLAM
     Dosage: 0.5 MILLIGRAM
     Route: 048
     Dates: start: 20210624, end: 20210624
  18. NEOSTIGMINE. [Concomitant]
     Active Substance: NEOSTIGMINE METHYLSULFATE
     Indication: Product used for unknown indication
     Dosage: UNK
     Route: 065
     Dates: start: 20210622, end: 20210629

REACTIONS (2)
  - Hyperglycaemia [Recovered/Resolved]
  - Hypopituitarism [Not Recovered/Not Resolved]

NARRATIVE: CASE EVENT DATE: 20210619
